FAERS Safety Report 22071417 (Version 4)
Quarter: 2023Q2

REPORT INFORMATION
  Report Type: Report from Study
  Country: CN (occurrence: CN)
  Receive Date: 20230307
  Receipt Date: 20230501
  Transmission Date: 20230721
  Serious: Yes (Hospitalization)
  Sender: FDA-Public Use
  Company Number: CN-JNJFOC-20230260199

PATIENT
  Age: 55 Year
  Sex: Female
  Weight: 58 kg

DRUGS (16)
  1. AMIVANTAMAB [Suspect]
     Active Substance: AMIVANTAMAB
     Indication: Non-small cell lung cancer metastatic
     Route: 042
     Dates: start: 20221102, end: 20230208
  2. CARBOPLATIN [Concomitant]
     Active Substance: CARBOPLATIN
     Indication: Non-small cell lung cancer metastatic
     Route: 042
     Dates: start: 20221103, end: 20230119
  3. PEMETREXED [Concomitant]
     Active Substance: PEMETREXED
     Indication: Non-small cell lung cancer metastatic
     Route: 042
     Dates: start: 20221103, end: 20230208
  4. FOLIC ACID [Concomitant]
     Active Substance: FOLIC ACID
     Indication: Vitamin supplementation
     Route: 048
     Dates: start: 20221021
  5. PHOSPHOLIPID [Concomitant]
     Active Substance: PHOSPHOLIPID
     Indication: Liver function test abnormal
     Route: 048
     Dates: start: 20221108
  6. IRON DEXTRAN [Concomitant]
     Active Substance: IRON DEXTRAN
     Indication: Anaemia
     Dosage: REPORTED AS DEXTRAN IRON SHEET
     Route: 048
     Dates: start: 20221120
  7. SANGUISORBA SPP. [Concomitant]
     Indication: Prophylaxis
     Dosage: REPORTED AS SANGUISORBA WHITE FLAKES
     Route: 048
     Dates: start: 20221120
  8. POTASSIUM PERMANGANATE [Concomitant]
     Active Substance: POTASSIUM PERMANGANATE
     Indication: Herpes virus infection
     Dosage: REPORTED AS POTASSIUM PERMANGANATE TABLETS FOR EXTERNAL USE
     Route: 062
     Dates: start: 20230209, end: 20230220
  9. RECOMBINANT HUMAN EPIDERMAL GROWTH FACTOR [Concomitant]
     Indication: Herpes virus infection
     Dosage: REPORTED AS HUMAN EPIDERMAL GROWTH FACTOR INJECTION
     Route: 062
     Dates: start: 20230209, end: 20230225
  10. RECOMBINANT HUMAN EPIDERMAL GROWTH FACTOR [Concomitant]
     Dosage: REPORTED AS HUMAN EPIDERMAL GROWTH FACTOR TOPICAL SOLUTION
     Route: 062
     Dates: start: 20230225, end: 20230402
  11. SALT [Concomitant]
     Active Substance: SODIUM CHLORIDE
     Indication: Herpes virus infection
     Dosage: REPORTED AS SALT HOT WATER
     Route: 062
     Dates: start: 20230220, end: 20230225
  12. GRANULOCYTE COLONY-STIMULATING FACTOR NOS [Concomitant]
     Active Substance: GRANULOCYTE COLONY-STIMULATING FACTOR NOS
     Indication: White blood cell count decreased
     Route: 062
     Dates: start: 20230213, end: 20230213
  13. GRANULOCYTE COLONY-STIMULATING FACTOR NOS [Concomitant]
     Active Substance: GRANULOCYTE COLONY-STIMULATING FACTOR NOS
     Indication: Neutrophil count decreased
  14. MEGESTROL ACETATE [Concomitant]
     Active Substance: MEGESTROL ACETATE
     Indication: Decreased appetite
     Route: 048
     Dates: start: 20230220
  15. RECOMBINANT HUMAN ERYTHROPOIETIN INJECTION (CHO CELL) [Concomitant]
     Indication: Anaemia
     Route: 062
     Dates: start: 20230220, end: 20230220
  16. OLOPATADINE HYDROCHLORIDE [Concomitant]
     Active Substance: OLOPATADINE HYDROCHLORIDE
     Indication: Herpes virus infection
     Route: 048
     Dates: start: 20230220, end: 20230225

REACTIONS (1)
  - Herpes virus infection [Recovering/Resolving]

NARRATIVE: CASE EVENT DATE: 20230225
